FAERS Safety Report 5857251-9 (Version None)
Quarter: 2008Q3

REPORT INFORMATION
  Report Type: 
  Country: None (occurrence: None)
  Receive Date: 20080821
  Receipt Date: 20080812
  Transmission Date: 20090109
  Serious: Yes (Life-Threatening, Hospitalization, Other)
  Sender: FDA-Public Use
  Company Number: 230231J08BRA

PATIENT
  Age: 24 Year
  Sex: Female

DRUGS (1)
  1. REBIF [Suspect]
     Dosage: 44 MCG, 3 IN 1 WEEKS
     Dates: start: 20070906, end: 20080227

REACTIONS (4)
  - AMNESIA [None]
  - COMA [None]
  - HEPATITIS [None]
  - LIVER TRANSPLANT [None]
